FAERS Safety Report 14677965 (Version 1)
Quarter: 2018Q1

REPORT INFORMATION
  Report Type: Spontaneous
  Country: US (occurrence: US)
  Receive Date: 20180326
  Receipt Date: 20180326
  Transmission Date: 20180509
  Serious: Yes (Other)
  Sender: FDA-Public Use
  Company Number: US-DRREDDYS-USA/USA/18/0096989

PATIENT
  Age: 60 Year
  Sex: Male

DRUGS (2)
  1. ROPINIROLE HYDROCHLORIDE XR 2 MG, 4 MG, 6 MG, 8 MG AND 12 MG TABLETS [Suspect]
     Active Substance: ROPINIROLE HYDROCHLORIDE
     Indication: POST-ANOXIC MYOCLONUS
     Route: 065
  2. RISPERIDONE. [Suspect]
     Active Substance: RISPERIDONE
     Indication: POST-ANOXIC MYOCLONUS
     Route: 065

REACTIONS (2)
  - Condition aggravated [Recovering/Resolving]
  - Nausea [Unknown]
